FAERS Safety Report 18917220 (Version 2)
Quarter: 2022Q4

REPORT INFORMATION
  Report Type: Other
  Country: DE (occurrence: None)
  Receive Date: 20210219
  Receipt Date: 20221209
  Transmission Date: 20230112
  Serious: Yes (Death, Hospitalization, Other)
  Sender: FDA-Public Use
  Company Number: DE-ROCHE-2767763

PATIENT
  Age: 63 Year
  Sex: Female

DRUGS (1)
  1. TOCILIZUMAB [Suspect]
     Active Substance: TOCILIZUMAB
     Indication: Rheumatoid arthritis
     Dosage: 162 MG / ONCE A WEEK UNTIL 06.07.2021
     Route: 058

REACTIONS (6)
  - Diabetes mellitus [Unknown]
  - Oral herpes [Unknown]
  - Fall [Unknown]
  - Diabetic coma [Unknown]
  - Staphylococcal sepsis [Fatal]
  - Acute kidney injury [Fatal]

NARRATIVE: CASE EVENT DATE: 20191201
